FAERS Safety Report 7693183-1 (Version None)
Quarter: 2011Q3

REPORT INFORMATION
  Report Type: 
  Country: None (occurrence: None)
  Receive Date: 20110819
  Receipt Date: 20110810
  Transmission Date: 20111222
  Serious: Yes (Other)
  Sender: FDA-Public Use
  Company Number: US-BAYER-200943905NA

PATIENT
  Age: 26 Year
  Sex: Female
  Weight: 98 kg

DRUGS (33)
  1. ALPRAZOLAM [Concomitant]
     Dosage: 1 MG, QD
     Route: 048
  2. METHOTREXATE [Concomitant]
     Dosage: 2.5 MG, Q6WK
     Route: 048
  3. FLUCONAZOLE [Concomitant]
     Dosage: 150 MG, QD
     Route: 048
  4. YASMIN [Suspect]
     Dosage: UNK
  5. TOPIRAMATE [Concomitant]
     Dosage: 100 MG, BID
     Route: 048
  6. AZITHROMYCIN [Concomitant]
     Dosage: 250 MG, QD
     Route: 048
  7. R-TANNATE [Concomitant]
     Dosage: 1 U, BID
     Route: 048
  8. AMITRIPTYLINE HCL [Concomitant]
     Dosage: 10 MG, QD
     Route: 048
  9. ANUCORT-HC [Concomitant]
     Dosage: 25 MG, UNK
     Route: 054
  10. CYCLOBENZAPRINE [Concomitant]
     Dosage: 10 MG, QD
     Route: 048
  11. FLUVIRIN [Concomitant]
     Dosage: 5 ML, QD
  12. CYMBALTA [Concomitant]
     Dosage: 40 MG, QD
     Route: 048
  13. FOLIC ACID [Concomitant]
     Dosage: 1 MG, QD
     Route: 048
  14. PSEUDOVENT [Concomitant]
     Dosage: 400 MG, QD
     Route: 048
  15. HYDROCODONE BITARTRATE AND ACETAMINOPHEN [Concomitant]
     Dosage: UNK UNK, PRN
     Route: 048
  16. WELLBUTRIN [Concomitant]
     Dosage: 150 MG, QD
     Route: 048
  17. ABILIFY [Concomitant]
     Dosage: 2 MG, QD
     Route: 048
  18. PREDNISONE [Concomitant]
     Dosage: 20 MG, QD
     Route: 048
  19. METRONIDAZOLE [Concomitant]
     Dosage: 500 MG, QD
     Route: 048
  20. NEXIUM [Concomitant]
     Dosage: 40 MG, QD
     Route: 048
  21. NUVIGIL [Concomitant]
     Dosage: 150 MG, QD
     Route: 048
  22. YAZ [Suspect]
     Indication: AMENORRHOEA
     Dosage: UNK
     Dates: start: 20050101, end: 20091201
  23. EFFEXOR XR [Concomitant]
     Dosage: UNK UNK, QD
     Route: 048
  24. CIPROFLOXACIN [Concomitant]
     Dosage: 500 MG, QD
     Route: 048
  25. RETIN-A MICRO [Concomitant]
     Dosage: 50 G, HS
     Route: 048
  26. BUPROPION HYDROCHLORIDE [Concomitant]
     Dosage: 300 MG, QD
     Route: 048
  27. YASMIN [Suspect]
     Indication: AMENORRHOEA
     Dosage: UNK
     Dates: start: 20050101, end: 20091201
  28. SUMATRIPTAN SUCCINATE [Concomitant]
     Dosage: 10 MG, QD
  29. H-C TUSSIVE [Concomitant]
     Dosage: UNK UNK, PRN
     Route: 048
  30. ETODOLAC [Concomitant]
     Dosage: 300 MG, BID
     Route: 048
  31. IMITREX [Concomitant]
     Dosage: 100 MG, QD
     Route: 048
  32. TRAMADOL HCL [Concomitant]
     Dosage: 50 MG, BID
     Route: 048
  33. TREXIMET [Concomitant]
     Dosage: 85 MG, QD
     Route: 048

REACTIONS (3)
  - ORGAN FAILURE [None]
  - GALLBLADDER DISORDER [None]
  - BILIARY DYSKINESIA [None]
